FAERS Safety Report 14616584 (Version 1)
Quarter: 2018Q1

REPORT INFORMATION
  Report Type: Spontaneous
  Country: GB (occurrence: GB)
  Receive Date: 20180309
  Receipt Date: 20180309
  Transmission Date: 20180509
  Serious: Yes (Life-Threatening, Hospitalization, Other)
  Sender: FDA-Public Use
  Company Number: GB-CIPLA LTD.-2018GB10534

PATIENT

DRUGS (1)
  1. FOLIC ACID. [Suspect]
     Active Substance: FOLIC ACID
     Indication: PRODUCT USED FOR UNKNOWN INDICATION
     Dosage: 5 MG, FIRST DOSE; IN TOTAL
     Route: 048

REACTIONS (4)
  - Vascular insufficiency [Unknown]
  - Peripheral artery aneurysm [Unknown]
  - Anaphylactic reaction [Unknown]
  - Aortic aneurysm [Unknown]
